FAERS Safety Report 22895207 (Version 2)
Quarter: 2023Q4

REPORT INFORMATION
  Report Type: Report from Study
  Country: DZ (occurrence: DZ)
  Receive Date: 20230901
  Receipt Date: 20231004
  Transmission Date: 20240110
  Serious: Yes (Other)
  Sender: FDA-Public Use
  Company Number: DZ-Merck Healthcare KGaA-2023471167

PATIENT
  Sex: Female
  Weight: 2 kg

DRUGS (1)
  1. REBIF [Suspect]
     Active Substance: INTERFERON BETA-1A
     Indication: Multiple sclerosis
     Route: 064

REACTIONS (3)
  - Foetal growth abnormality [Unknown]
  - Breech presentation [Unknown]
  - Foetal exposure during pregnancy [Unknown]
